FAERS Safety Report 4899718-6 (Version None)
Quarter: 2006Q1

REPORT INFORMATION
  Report Type: 
  Country: None (occurrence: None)
  Receive Date: 20060131
  Receipt Date: 20051121
  Transmission Date: 20060701
  Serious: Yes (Death)
  Sender: FDA-Public Use
  Company Number: 2006-US-00472

PATIENT
  Age: 50 Year
  Sex: Male

DRUGS (2)
  1. CLOZAPINE [Suspect]
     Indication: BIPOLAR DISORDER
     Dosage: 475 MG, QD; ORAL
     Route: 048
     Dates: start: 20041001, end: 20051001
  2. CLOZAPINE [Suspect]
     Indication: SCHIZOPHRENIA
     Dosage: 475 MG, QD; ORAL
     Route: 048
     Dates: start: 20041001, end: 20051001

REACTIONS (1)
  - CARDIO-RESPIRATORY ARREST [None]
